FAERS Safety Report 5456457-0 (Version None)
Quarter: 2007Q3

REPORT INFORMATION
  Report Type: 
  Country: None (occurrence: None)
  Receive Date: 20070914
  Receipt Date: 20070914
  Transmission Date: 20080115
  Serious: Yes (Life-Threatening)
  Sender: FDA-Public Use
  Company Number: None

PATIENT
  Sex: Female
  Weight: 83.4 kg

DRUGS (1)
  1. DEFINITY [Suspect]
     Indication: ECHOCARDIOGRAM
     Dates: start: 20070911, end: 20070911

REACTIONS (2)
  - ANAPHYLACTIC REACTION [None]
  - BACK PAIN [None]
